FAERS Safety Report 5092261-3 (Version None)
Quarter: 2006Q3

REPORT INFORMATION
  Report Type: 
  Country: None (occurrence: None)
  Receive Date: 20060828
  Receipt Date: 20060828
  Transmission Date: 20061208
  Serious: No
  Sender: FDA-Public Use
  Company Number: None

PATIENT
  Age: 21 Year
  Sex: Female
  Weight: 65.7716 kg

DRUGS (1)
  1. MOTRIN [Suspect]
     Indication: HEADACHE
     Dosage: 800 MG SOMETIMES QD PO
     Route: 048

REACTIONS (6)
  - AMNESIA [None]
  - BRADYPHRENIA [None]
  - FEELING ABNORMAL [None]
  - LETHARGY [None]
  - VISION BLURRED [None]
  - VISUAL FIELD DEFECT [None]
